FAERS Safety Report 8010419 (Version 5)
Quarter: 2014Q1

REPORT INFORMATION
  Report Type: Spontaneous
  Country: US (occurrence: US)
  Receive Date: 20110627
  Receipt Date: 20140227
  Transmission Date: 20141002
  Serious: Yes (Hospitalization, Other)
  Sender: FDA-Public Use
  Company Number: US-ROCHE-784994

PATIENT
  Sex: Male
  Weight: 68 kg

DRUGS (3)
  1. ACCUTANE [Suspect]
     Indication: ACNE
     Route: 065
     Dates: start: 19820401, end: 198306
  2. ACCUTANE [Suspect]
     Route: 065
     Dates: start: 19850809, end: 19851107
  3. ACCUTANE [Suspect]
     Route: 065

REACTIONS (4)
  - Colitis ulcerative [Unknown]
  - Injury [Unknown]
  - Colon injury [Unknown]
  - Depression [Unknown]
